FAERS Safety Report 7936596-2 (Version None)
Quarter: 2011Q4

REPORT INFORMATION
  Report Type: 
  Country: None (occurrence: None)
  Receive Date: 20111123
  Receipt Date: 20111117
  Transmission Date: 20120403
  Serious: Yes (Other)
  Sender: FDA-Public Use
  Company Number: CA-PFIZER INC-2011284253

PATIENT
  Sex: Female
  Weight: 90.7 kg

DRUGS (7)
  1. IRBESARTAN [Concomitant]
     Route: 048
  2. MORPHINE SULFATE [Suspect]
  3. METFORMIN [Concomitant]
     Route: 048
  4. RANITIDINE [Concomitant]
     Route: 048
  5. HUMIRA [Suspect]
     Dosage: 40 MG, EVERY 2 WEEKS
     Route: 058
  6. AMILORIDE HCL AND HYDROCHLOROTHIAZIDE [Concomitant]
     Route: 048
  7. METHOTREXATE [Concomitant]
     Route: 058

REACTIONS (3)
  - NAUSEA [None]
  - HEPATIC ENZYME INCREASED [None]
  - DRUG INEFFECTIVE [None]
